FAERS Safety Report 20504996 (Version 3)
Quarter: 2023Q2

REPORT INFORMATION
  Report Type: Spontaneous
  Country: FI (occurrence: FI)
  Receive Date: 20220223
  Receipt Date: 20230607
  Transmission Date: 20230721
  Serious: Yes (Hospitalization, Other)
  Sender: FDA-Public Use
  Company Number: FR-JNJFOC-20220116865

PATIENT
  Age: 39 Year
  Sex: Female

DRUGS (3)
  1. TREMFYA [Suspect]
     Active Substance: GUSELKUMAB
     Indication: Psoriasis
     Dosage: 1ST INJECTION
     Route: 065
  2. TREMFYA [Suspect]
     Active Substance: GUSELKUMAB
     Dosage: FIVE WEEKS PRIOR TO VACCINATION
     Route: 065
  3. PFIZER-BIONTECH COVID-19 VACCINE [Interacting]
     Active Substance: TOZINAMERAN
     Indication: Prophylaxis
     Route: 065

REACTIONS (3)
  - Herpes virus infection [Recovering/Resolving]
  - Fatigue [Unknown]
  - Drug interaction [Recovering/Resolving]

NARRATIVE: CASE EVENT DATE: 20210101
